APPROVED DRUG PRODUCT: 8-HOUR BAYER
Active Ingredient: ASPIRIN
Strength: 650MG
Dosage Form/Route: TABLET, EXTENDED RELEASE;ORAL
Application: N016030 | Product #001
Applicant: BAYER HEALTHCARE LLC
Approved: Approved Prior to Jan 1, 1982 | RLD: No | RS: No | Type: DISCN